FAERS Safety Report 11992040 (Version 1)
Quarter: 2016Q1

REPORT INFORMATION
  Report Type: Spontaneous
  Country: US (occurrence: US)
  Receive Date: 20160203
  Receipt Date: 20160203
  Transmission Date: 20160526
  Serious: No
  Sender: FDA-Public Use
  Company Number: US-JNJFOC-20151209268

PATIENT
  Age: 14 Year
  Sex: Female

DRUGS (1)
  1. CHILDRENS TYLENOL [Suspect]
     Active Substance: ACETAMINOPHEN
     Indication: PYREXIA
     Dosage: 1 TABLESPOON
     Route: 048
     Dates: start: 20151209

REACTIONS (2)
  - Drug administered to patient of inappropriate age [Unknown]
  - Off label use [Unknown]
